FAERS Safety Report 4685766-8 (Version None)
Quarter: 2005Q2

REPORT INFORMATION
  Report Type: 
  Country: None (occurrence: None)
  Receive Date: 20050608
  Receipt Date: 20050523
  Transmission Date: 20051028
  Serious: Yes (Hospitalization)
  Sender: FDA-Public Use
  Company Number: US015311

PATIENT
  Age: 33 Year
  Sex: Female

DRUGS (4)
  1. GABITRIL [Suspect]
  2. LAMICTAL [Suspect]
     Indication: BIPOLAR DISORDER
     Dosage: 100 MG QD ORAL
     Route: 048
  3. CYMBALTA [Concomitant]
  4. ADDERALL [Concomitant]

REACTIONS (1)
  - CONVULSION [None]
